FAERS Safety Report 6275977-2 (Version None)
Quarter: 2009Q3

REPORT INFORMATION
  Report Type: 
  Country: None (occurrence: None)
  Receive Date: 20090720
  Receipt Date: 20090701
  Transmission Date: 20100115
  Serious: Yes (Other)
  Sender: FDA-Public Use
  Company Number: 2009AL002410

PATIENT
  Age: 56 Year
  Sex: Female

DRUGS (24)
  1. DIGOXIN [Suspect]
     Dosage: 0.125MG, DAILY, PO
     Route: 048
     Dates: start: 20030401, end: 20080721
  2. POTASSIUM CHLORIDE [Concomitant]
  3. TRIMOX [Concomitant]
  4. TEQUIN [Concomitant]
  5. KLOR-CON [Concomitant]
  6. XALATAN [Concomitant]
  7. PROPO-N-APAP [Concomitant]
  8. WARFARIN SODIUM [Concomitant]
  9. AMITRIPTYLINE HCL [Concomitant]
  10. AMOXICILLIN [Concomitant]
  11. RELION/NOVO [Concomitant]
  12. LUMIGAN [Concomitant]
  13. HUMULIN R [Concomitant]
  14. METOCLOPRAM [Concomitant]
  15. TOPROL-XL [Concomitant]
  16. COSOPT [Concomitant]
  17. GLIMEPIRIDE [Concomitant]
  18. CIPROFLOXACIN [Concomitant]
  19. LISINOPRIL [Concomitant]
  20. METHAZOLAMID [Concomitant]
  21. BIMETANIDE [Concomitant]
  22. METFORMIN HCL [Concomitant]
  23. BLEPHAMIDE [Concomitant]
  24. ZOCOR [Concomitant]

REACTIONS (3)
  - ECONOMIC PROBLEM [None]
  - MULTIPLE INJURIES [None]
  - SURGERY [None]
